FAERS Safety Report 9134984 (Version 1)
Quarter: 2013Q1

REPORT INFORMATION
  Report Type: Spontaneous
  Country: US (occurrence: US)
  Receive Date: 20130304
  Receipt Date: 20130304
  Transmission Date: 20140127
  Serious: Yes (Other)
  Sender: FDA-Public Use
  Company Number: US-PFIZER INC-2013070929

PATIENT
  Age: 79 Year
  Sex: Female
  Weight: 73.92 kg

DRUGS (19)
  1. TOVIAZ [Suspect]
     Indication: URINARY INCONTINENCE
     Dosage: 4 MG, SINGLE
     Route: 048
     Dates: start: 20130222, end: 20130222
  2. LEVOTHYROXINE [Concomitant]
     Indication: THYROID DISORDER
     Dosage: 0.5 MG, 1X/DAY
  3. OMEPRAZOLE [Concomitant]
     Indication: DYSPEPSIA
     Dosage: 20 MG, 2X/DAY
  4. GABAPENTIN [Concomitant]
     Indication: NEUROPATHY PERIPHERAL
     Dosage: 300 MG, 2X/DAY
  5. CARVEDILOL [Concomitant]
     Indication: HYPERTENSION
     Dosage: 25 MG, 1X/DAY
  6. HYDROCODONE/ACETAMINOPHEN [Concomitant]
     Indication: PAIN
     Dosage: 5/500 MG, 2X/DAY
  7. ESTRADIOL [Concomitant]
     Indication: HORMONE LEVEL ABNORMAL
     Dosage: 0.5 MG, 2X/WEEK
  8. LISINOPRIL [Concomitant]
     Indication: HYPERTENSION
     Dosage: 10 MG, 1X/DAY
  9. CLOPIDOGREL [Concomitant]
     Indication: CARDIAC DISORDER
     Dosage: 75 MG, 1X/DAY
  10. CLOPIDOGREL [Concomitant]
     Indication: CEREBROVASCULAR ACCIDENT
  11. LAMOTRIGINE [Concomitant]
     Indication: BIPOLAR I DISORDER
     Dosage: 100 MG, 1X/DAY
  12. SIMVASTATIN [Concomitant]
     Indication: BLOOD CHOLESTEROL INCREASED
     Dosage: 20 MG, 1X/DAY
  13. PAROXETINE [Concomitant]
     Indication: HYPERTENSION
     Dosage: 20 MG, 1X/DAY
  14. ADVAIR DISKUS [Concomitant]
     Indication: DYSPNOEA
     Dosage: 250/50 UG, 2X/DAY
     Route: 045
  15. SPIRIVA [Concomitant]
     Indication: LUNG DISORDER
     Dosage: UNK, 1X/DAY
  16. SPIRIVA [Concomitant]
     Indication: DYSPNOEA
  17. LORAZEPAM [Concomitant]
     Indication: ANXIETY
     Dosage: 1 MG, AS NEEDED
  18. ALLOPURINOL [Concomitant]
     Indication: GOUT
     Dosage: 100 MG, 1X/DAY
  19. ZOLPIDEM [Concomitant]
     Indication: INSOMNIA
     Dosage: UNK

REACTIONS (2)
  - Dyspnoea [Recovering/Resolving]
  - Pharyngeal disorder [Unknown]
